FAERS Safety Report 5403864-8 (Version None)
Quarter: 2007Q3

REPORT INFORMATION
  Report Type: 
  Country: None (occurrence: None)
  Receive Date: 20070731
  Receipt Date: 20070731
  Transmission Date: 20080115
  Serious: Yes (Other)
  Sender: FDA-Public Use
  Company Number: None

PATIENT
  Age: 37 Year
  Sex: Female
  Weight: 78.9259 kg

DRUGS (1)
  1. DICLOXACILLIN [Suspect]
     Indication: LYMPH GLAND INFECTION
     Dosage: 250 MG 4 X DAY PO
     Route: 048
     Dates: start: 20070728, end: 20070730

REACTIONS (2)
  - FATIGUE [None]
  - INSOMNIA [None]
